FAERS Safety Report 17922080 (Version 1)
Quarter: 2020Q2

REPORT INFORMATION
  Report Type: Spontaneous
  Country: US (occurrence: US)
  Receive Date: 20200621
  Receipt Date: 20200621
  Transmission Date: 20200714
  Serious: No
  Sender: FDA-Public Use
  Company Number: None

PATIENT
  Age: 37 Year
  Sex: Female
  Weight: 91 kg

DRUGS (5)
  1. ENOXAPARIN 40 MG SQ DAILY [Concomitant]
     Dates: start: 20200603, end: 20200612
  2. ZINC SULFATE 220 MG QDAY [Concomitant]
     Dates: start: 20200605, end: 20200612
  3. REMDESIVIR EUA SOLUTION [Suspect]
     Active Substance: REMDESIVIR
     Indication: COVID-19
     Route: 041
     Dates: start: 20200602, end: 20200606
  4. TOPIRAMATE 50 MG QDAY [Concomitant]
     Dates: start: 20200605, end: 20200612
  5. FILGASTIM 480 MCG ONCE [Concomitant]
     Dates: start: 20200604, end: 20200604

REACTIONS (1)
  - Neutropenia [None]

NARRATIVE: CASE EVENT DATE: 20200604
